FAERS Safety Report 4477703-6 (Version None)
Quarter: 2004Q4

REPORT INFORMATION
  Report Type: 
  Country: None (occurrence: None)
  Receive Date: 20041014
  Receipt Date: 20040930
  Transmission Date: 20050328
  Serious: Yes (Hospitalization, Other)
  Sender: FDA-Public Use
  Company Number: 164829

PATIENT
  Sex: Male
  Weight: 119.296 kg

DRUGS (14)
  1. AVONEX [Suspect]
     Indication: MULTIPLE SCLEROSIS
     Dosage: 30 MCG QW IM
     Route: 030
     Dates: start: 20010601
  2. ALLOPURINOL [Concomitant]
  3. AMANTADINE HCL [Concomitant]
  4. GLUCOPHAGE [Concomitant]
  5. PRILOSEC [Concomitant]
  6. ACARBOSE [Concomitant]
  7. HYZAAR [Concomitant]
  8. ISOSORBIDE [Concomitant]
  9. PRINIVIL [Concomitant]
  10. PROVIGIL [Concomitant]
  11. QUININE [Concomitant]
  12. ZOCOR [Concomitant]
  13. LANTUS [Concomitant]
  14. CLONAZEPAM [Concomitant]

REACTIONS (4)
  - BLOOD PRESSURE SYSTOLIC INCREASED [None]
  - CORONARY ARTERY RESTENOSIS [None]
  - MYOCARDIAL INFARCTION [None]
  - SKIN CANCER [None]
